FAERS Safety Report 10695905 (Version 2)
Quarter: 2015Q1

REPORT INFORMATION
  Report Type: Spontaneous
  Country: PT (occurrence: PT)
  Receive Date: 20150107
  Receipt Date: 20150114
  Transmission Date: 20150721
  Serious: Yes (Death)
  Sender: FDA-Public Use
  Company Number: PT-PFIZER INC-2015002810

PATIENT
  Age: 82 Year
  Sex: Male

DRUGS (3)
  1. PIPERACILLIN/TAZOBACTAM [Suspect]
     Active Substance: PIPERACILLIN SODIUM\TAZOBACTAM SODIUM
     Indication: EVIDENCE BASED TREATMENT
     Dosage: UNK
  2. AMIKACIN [Suspect]
     Active Substance: AMIKACIN
     Indication: EVIDENCE BASED TREATMENT
     Dosage: UNK
  3. FLUCONAZOLE. [Suspect]
     Active Substance: FLUCONAZOLE
     Indication: EVIDENCE BASED TREATMENT
     Dosage: UNK

REACTIONS (5)
  - Cyanosis [None]
  - General physical condition abnormal [None]
  - Drug ineffective for unapproved indication [Fatal]
  - Oedema [None]
  - Altered state of consciousness [None]
